FAERS Safety Report 6398787-4 (Version None)
Quarter: 2009Q4

REPORT INFORMATION
  Report Type: 
  Country: None (occurrence: None)
  Receive Date: 20091013
  Receipt Date: 20091009
  Transmission Date: 20100525
  Serious: Yes (Hospitalization, Other)
  Sender: FDA-Public Use
  Company Number: FR-GILEAD-2009-0023801

PATIENT
  Age: 43 Year
  Sex: Female

DRUGS (3)
  1. TRUVADA [Suspect]
     Indication: HIV INFECTION
     Route: 048
     Dates: start: 20090408, end: 20090420
  2. TRUVADA [Suspect]
     Dates: start: 20090629
  3. REYATAZ [Suspect]
     Indication: HIV INFECTION
     Route: 048
     Dates: start: 20090408, end: 20090420

REACTIONS (5)
  - COUGH [None]
  - DIZZINESS [None]
  - FACE OEDEMA [None]
  - PYREXIA [None]
  - RASH [None]
